FAERS Safety Report 7656003-7 (Version None)
Quarter: 2011Q3

REPORT INFORMATION
  Report Type: 
  Country: None (occurrence: None)
  Receive Date: 20110802
  Receipt Date: 20110715
  Transmission Date: 20111222
  Serious: Yes (Hospitalization)
  Sender: FDA-Public Use
  Company Number: 2011MA008967

PATIENT
  Age: 51 Year
  Sex: Male

DRUGS (9)
  1. ISOSORBIDE MONONITRATE [Suspect]
     Indication: CORONARY ARTERY DISEASE
  2. SPIRONOLACTONE [Suspect]
     Indication: CORONARY ARTERY DISEASE
     Dosage: 50 MG;QD
  3. AMLODIPINE [Suspect]
     Indication: CORONARY ARTERY DISEASE
  4. QUINAPRIL HCL [Suspect]
     Indication: CORONARY ARTERY DISEASE
     Dosage: 20 MG;BID
  5. BISOPROLOL FUMARATE [Suspect]
     Indication: CORONARY ARTERY DISEASE
  6. INDAPAMIDE [Suspect]
     Indication: CORONARY ARTERY DISEASE
  7. INSULIN (INSULIN) [Suspect]
     Indication: CORONARY ARTERY DISEASE
  8. SIMVASTATIN [Suspect]
     Indication: CORONARY ARTERY DISEASE
     Dosage: 20 MG;QD
  9. ASPIRIN [Suspect]
     Indication: CORONARY ARTERY DISEASE

REACTIONS (13)
  - HYPERKALAEMIA [None]
  - SYNCOPE [None]
  - DIARRHOEA [None]
  - MYALGIA [None]
  - ATRIOVENTRICULAR BLOCK COMPLETE [None]
  - CONFUSIONAL STATE [None]
  - ASTHENIA [None]
  - PAIN IN EXTREMITY [None]
  - TRICUSPID VALVE INCOMPETENCE [None]
  - RHABDOMYOLYSIS [None]
  - PRODUCT SUBSTITUTION ISSUE [None]
  - DEHYDRATION [None]
  - MITRAL VALVE INCOMPETENCE [None]
